FAERS Safety Report 5471073-2 (Version None)
Quarter: 2007Q3

REPORT INFORMATION
  Report Type: 
  Country: None (occurrence: None)
  Receive Date: 20070925
  Receipt Date: 20070917
  Transmission Date: 20080115
  Serious: Yes (Hospitalization)
  Sender: FDA-Public Use
  Company Number: 163-21880-07090872

PATIENT
  Age: 75 Year
  Sex: Female

DRUGS (3)
  1. REVLIMID [Suspect]
     Indication: MULTIPLE MYELOMA
     Dosage: X21 DAYS EVERY 28 DAYS, ORAL; X21 DAYS EVEYR 28 DAYS, ORAL
     Route: 048
     Dates: start: 20070201, end: 20070401
  2. REVLIMID [Suspect]
     Indication: MULTIPLE MYELOMA
     Dosage: X21 DAYS EVERY 28 DAYS, ORAL; X21 DAYS EVEYR 28 DAYS, ORAL
     Route: 048
     Dates: start: 20070501, end: 20070601
  3. REVLIMID [Suspect]
     Indication: MULTIPLE MYELOMA
     Dosage: X21 DAYS EVERY 28 DAYS, ORAL; X21 DAYS EVEYR 28 DAYS, ORAL
     Route: 048
     Dates: start: 20070719

REACTIONS (3)
  - CANDIDIASIS [None]
  - PRURITUS [None]
  - RASH [None]
